FAERS Safety Report 9578929 (Version 2)
Quarter: 2013Q4

REPORT INFORMATION
  Report Type: Spontaneous
  Country: US (occurrence: US)
  Receive Date: 20131001
  Receipt Date: 20131001
  Transmission Date: 20140711
  Serious: No
  Sender: FDA-Public Use
  Company Number: US-AMGEN-USASP2013002639

PATIENT
  Age: 65 Year
  Sex: Male

DRUGS (1)
  1. ENBREL [Suspect]
     Indication: PSORIASIS
     Dosage: 40 MG, QWK
     Route: 030
     Dates: start: 20120813

REACTIONS (2)
  - Joint lock [Recovered/Resolved]
  - Injection site pain [Recovered/Resolved]
